FAERS Safety Report 7786613-8 (Version None)
Quarter: 2011Q3

REPORT INFORMATION
  Report Type: 
  Country: None (occurrence: None)
  Receive Date: 20110929
  Receipt Date: 20110920
  Transmission Date: 20111222
  Serious: No
  Sender: FDA-Public Use
  Company Number: CA-ELI_LILLY_AND_COMPANY-CA201109005413

PATIENT
  Sex: Male

DRUGS (11)
  1. ZYPREXA [Suspect]
     Indication: SCHIZOPHRENIA
     Dosage: 20 MG, QD
  2. ATIVAN [Concomitant]
  3. HALCION [Concomitant]
  4. ZYPREXA [Suspect]
     Dosage: 25 MG, QD
  5. PAXIL [Concomitant]
  6. ZOPICLONE [Concomitant]
  7. ZOLOFT [Concomitant]
  8. ZYPREXA [Suspect]
     Dosage: 10 MG, QD
  9. HYDROXYZINE [Concomitant]
  10. ZYPREXA [Suspect]
     Dosage: 7.5 MG, QD
  11. RISPERDAL [Concomitant]

REACTIONS (8)
  - RECTAL HAEMORRHAGE [None]
  - VISION BLURRED [None]
  - DIABETES MELLITUS [None]
  - ALANINE AMINOTRANSFERASE INCREASED [None]
  - GAMMA-GLUTAMYLTRANSFERASE INCREASED [None]
  - WEIGHT INCREASED [None]
  - OVERDOSE [None]
  - HYPERLIPIDAEMIA [None]
